FAERS Safety Report 11743526 (Version 2)
Quarter: 2015Q4

REPORT INFORMATION
  Report Type: Spontaneous
  Country: JP (occurrence: JP)
  Receive Date: 20151116
  Receipt Date: 20151130
  Transmission Date: 20160304
  Serious: Yes (Death, Other)
  Sender: FDA-Public Use
  Company Number: JP-JNJFOC-20151016922

PATIENT
  Age: 57 Year
  Sex: Male
  Weight: 84.99 kg

DRUGS (6)
  1. XARELTO [Suspect]
     Active Substance: RIVAROXABAN
     Indication: THROMBOSIS PROPHYLAXIS
     Route: 048
     Dates: start: 20140528, end: 20151011
  2. XARELTO [Suspect]
     Active Substance: RIVAROXABAN
     Indication: EMBOLISM VENOUS
     Route: 048
     Dates: start: 20140528, end: 20151011
  3. XARELTO [Suspect]
     Active Substance: RIVAROXABAN
     Indication: DEEP VEIN THROMBOSIS
     Route: 048
     Dates: start: 20140528, end: 20151011
  4. ZETIA [Concomitant]
     Active Substance: EZETIMIBE
     Indication: DIABETES MELLITUS
     Route: 048
     Dates: start: 20140711
  5. PROTECADIN [Concomitant]
     Active Substance: LAFUTIDINE
     Route: 048
     Dates: start: 20120824
  6. DEPAS [Concomitant]
     Active Substance: ETIZOLAM
     Route: 048
     Dates: start: 20130703

REACTIONS (2)
  - Brain stem haemorrhage [Fatal]
  - Coma [Unknown]

NARRATIVE: CASE EVENT DATE: 20151011
